FAERS Safety Report 6934348-3 (Version None)
Quarter: 2010Q3

REPORT INFORMATION
  Report Type: 
  Country: None (occurrence: None)
  Receive Date: 20100820
  Receipt Date: 20100816
  Transmission Date: 20110219
  Serious: Yes (Hospitalization)
  Sender: FDA-Public Use
  Company Number: A0876114A

PATIENT
  Sex: Male

DRUGS (7)
  1. ADVAIR DISKUS 100/50 [Suspect]
     Indication: CHRONIC OBSTRUCTIVE PULMONARY DISEASE
     Dosage: 1PUFF TWICE PER DAY
     Route: 055
  2. LOVASTATIN [Concomitant]
  3. LISINOPRIL [Concomitant]
  4. DOXAZOSIN [Concomitant]
  5. CITALOPRAM HYDROBROMIDE [Concomitant]
  6. OMEPRAZOLE [Concomitant]
  7. ALBUTEROL [Concomitant]

REACTIONS (9)
  - COLLAPSE OF LUNG [None]
  - DRY THROAT [None]
  - DYSPNOEA [None]
  - LUNG WEDGE RESECTION [None]
  - NASOPHARYNGITIS [None]
  - PAIN [None]
  - PNEUMOTHORAX [None]
  - PULMONARY AIR LEAKAGE [None]
  - WHEEZING [None]
